FAERS Safety Report 4487797-X (Version None)
Quarter: 2004Q4

REPORT INFORMATION
  Report Type: 
  Country: None (occurrence: None)
  Receive Date: 20041027
  Receipt Date: 20041027
  Transmission Date: 20050328
  Serious: Yes (Death, Other)
  Sender: FDA-Public Use
  Company Number: None

PATIENT
  Age: 64 Year
  Sex: Female

DRUGS (3)
  1. PAMIDRONATE DISODIUM [Suspect]
     Dosage: 90 MG IV Q NOS
     Route: 042
  2. EXTRACTION OF TEETH [Concomitant]
  3. MINOR DEBRIDEMENT [Concomitant]

REACTIONS (1)
  - OSTEONECROSIS [None]
